FAERS Safety Report 7151584-4 (Version None)
Quarter: 2010Q4

REPORT INFORMATION
  Report Type: 
  Country: None (occurrence: None)
  Receive Date: 20101124
  Receipt Date: 20101110
  Transmission Date: 20110411
  Serious: Yes (Hospitalization)
  Sender: FDA-Public Use
  Company Number: 2010004570

PATIENT
  Age: 52 Year
  Sex: Male

DRUGS (3)
  1. TARCEVA [Suspect]
     Indication: LUNG NEOPLASM MALIGNANT
     Dosage: (150 MG, QD), ORAL
     Route: 048
     Dates: start: 20101015, end: 20101020
  2. METFORMIN HCL [Concomitant]
  3. DECADRON [Concomitant]

REACTIONS (4)
  - DYSPNOEA [None]
  - HYPERCOAGULATION [None]
  - PNEUMONIA [None]
  - PULMONARY EMBOLISM [None]
